FAERS Safety Report 7204075-6 (Version None)
Quarter: 2010Q4

REPORT INFORMATION
  Report Type: 
  Country: None (occurrence: None)
  Receive Date: 20101230
  Receipt Date: 20101221
  Transmission Date: 20110411
  Serious: Yes (Other)
  Sender: FDA-Public Use
  Company Number: US-ELI_LILLY_AND_COMPANY-US201010004326

PATIENT
  Sex: Female

DRUGS (6)
  1. CYMBALTA [Suspect]
     Indication: MAJOR DEPRESSION
     Dosage: 30 MG, UNK
     Dates: start: 20091125
  2. CYMBALTA [Suspect]
     Dosage: 60 MG, DAILY (1/D)
     Dates: start: 20090901
  3. CYMBALTA [Suspect]
     Dosage: 100 MG, UNK
     Dates: end: 20100807
  4. KLONOPIN [Concomitant]
     Indication: ANXIETY
     Dosage: 0.5 MG, UNK
  5. TRAZODONE [Concomitant]
     Indication: INSOMNIA
     Dosage: 100 MG, UNK
  6. AMBIEN CR [Concomitant]
     Indication: INSOMNIA
     Dosage: 12.5 MG, UNK

REACTIONS (3)
  - ALOPECIA [None]
  - NAIL DISCOLOURATION [None]
  - ONYCHOCLASIS [None]
